FAERS Safety Report 5907206-0 (Version None)
Quarter: 2008Q4

REPORT INFORMATION
  Report Type: 
  Country: None (occurrence: None)
  Receive Date: 20081003
  Receipt Date: 20080924
  Transmission Date: 20090506
  Serious: Yes (Other)
  Sender: FDA-Public Use
  Company Number: US-ROCHE-588033

PATIENT
  Sex: Female

DRUGS (10)
  1. PEG-INTERFERON A-2A (RO 25-8310) [Suspect]
     Indication: HEPATITIS C
     Dosage: FORM: PFS
     Route: 065
     Dates: start: 20080915
  2. RIBAVIRIN [Suspect]
     Indication: HEPATITIS C
     Route: 065
     Dates: start: 20080915
  3. OXYCONTIN [Concomitant]
  4. PERCOCET [Concomitant]
  5. PREDNISONE [Concomitant]
  6. VISTARIL [Concomitant]
  7. REMERON [Concomitant]
  8. XANAX [Concomitant]
  9. ZYPREXA [Concomitant]
  10. SULAR [Concomitant]

REACTIONS (1)
  - RAYNAUD'S PHENOMENON [None]
